FAERS Safety Report 23089230 (Version 1)
Quarter: 2023Q4

REPORT INFORMATION
  Report Type: Spontaneous
  Country: US (occurrence: None)
  Receive Date: 20231019
  Receipt Date: 20231019
  Transmission Date: 20240109
  Serious: Yes (Hospitalization)
  Sender: FDA-Public Use
  Company Number: None

PATIENT
  Age: 74 Year
  Sex: Male

DRUGS (1)
  1. IOPROMIDE [Suspect]
     Active Substance: IOPROMIDE
     Dosage: OTHER QUANTITY : 80ML;?
     Dates: start: 20230228

REACTIONS (3)
  - Hypertension [None]
  - Hypotension [None]
  - Pruritus [None]

NARRATIVE: CASE EVENT DATE: 20230228
